FAERS Safety Report 18293951 (Version 1)
Quarter: 2020Q3

REPORT INFORMATION
  Report Type: Spontaneous
  Country: US (occurrence: US)
  Receive Date: 20200922
  Receipt Date: 20200922
  Transmission Date: 20201103
  Serious: Yes (Death)
  Sender: FDA-Public Use
  Company Number: None

PATIENT
  Age: 60 Year
  Sex: Female

DRUGS (1)
  1. AXICABTAGENE CILOLEUCEL [Suspect]
     Active Substance: AXICABTAGENE CILOLEUCEL
     Indication: DIFFUSE LARGE B-CELL LYMPHOMA
     Dosage: ?          OTHER FREQUENCY:ONCE;?
     Route: 042
     Dates: start: 20200218, end: 20200218

REACTIONS (14)
  - Vomiting [None]
  - Blood pressure decreased [None]
  - Hyponatraemia [None]
  - Diarrhoea [None]
  - Acute kidney injury [None]
  - Metastases to liver [None]
  - Continuous haemodiafiltration [None]
  - Pneumonia [None]
  - Anuria [None]
  - Fluid overload [None]
  - Non-Hodgkin^s lymphoma [None]
  - Lymphocyte adoptive therapy [None]
  - Aspiration [None]
  - Pleural effusion [None]

NARRATIVE: CASE EVENT DATE: 20200409
